FAERS Safety Report 7568699-9 (Version None)
Quarter: 2011Q2

REPORT INFORMATION
  Report Type: 
  Country: None (occurrence: None)
  Receive Date: 20110623
  Receipt Date: 20110609
  Transmission Date: 20111010
  Serious: Yes (Other)
  Sender: FDA-Public Use
  Company Number: IE-JNJFOC-20110605909

PATIENT
  Age: 43 Year
  Sex: Female

DRUGS (10)
  1. REMICADE [Suspect]
     Indication: CROHN'S DISEASE
     Route: 042
  2. ACETAMINOPHEN [Concomitant]
     Indication: PREMEDICATION
     Route: 048
     Dates: start: 20110318
  3. CHLORPHENIRAMINE MALEATE [Concomitant]
     Indication: PREMEDICATION
     Route: 048
     Dates: start: 20110318
  4. PANTOPRAZOLE [Concomitant]
     Indication: GASTRITIS
     Route: 048
     Dates: start: 20101001
  5. CALCICHEW [Concomitant]
     Indication: PROPHYLAXIS
     Route: 048
  6. REMICADE [Suspect]
     Dosage: 4TH INFUSION
     Route: 042
     Dates: start: 20110318
  7. NEURONTIN [Concomitant]
     Indication: BACK PAIN
     Route: 048
     Dates: start: 20101001
  8. HYDROCORTISONE [Concomitant]
     Indication: PREMEDICATION
     Route: 042
     Dates: start: 20110318
  9. WARFARIN SODIUM [Concomitant]
     Indication: CAROTID ARTERY DISSECTION
     Dosage: AS PER INR
     Dates: start: 20100901
  10. PENTASA [Concomitant]
     Indication: CROHN'S DISEASE
     Route: 048
     Dates: start: 20101001

REACTIONS (7)
  - BLOOD PRESSURE INCREASED [None]
  - INFUSION RELATED REACTION [None]
  - THROAT TIGHTNESS [None]
  - WHEEZING [None]
  - COUGH [None]
  - TACHYCARDIA [None]
  - FLUSHING [None]
